FAERS Safety Report 10698856 (Version 4)
Quarter: 2015Q2

REPORT INFORMATION
  Report Type: Report from Study
  Country: CN (occurrence: CN)
  Receive Date: 20150108
  Receipt Date: 20150402
  Transmission Date: 20150821
  Serious: Yes (Hospitalization, Congenital Anomaly)
  Sender: FDA-Public Use
  Company Number: CN-BAYER-2014-188117

PATIENT
  Age: 0 Day
  Sex: Male
  Weight: 1.59 kg

DRUGS (5)
  1. CALCIUM GLUCONATE. [Concomitant]
     Active Substance: CALCIUM GLUCONATE
     Dosage: 5 MG, BID (10*10 ML/BOX)
     Route: 048
  2. DESOGESTREL AND ETHINYL ESTRADIOL [Concomitant]
     Active Substance: DESOGESTREL\ETHINYL ESTRADIOL
     Indication: CONTRACEPTION
     Dosage: UNK
  3. VITAMIN A + D [COLECALCIFEROL,RETINOL] [Concomitant]
     Dosage: 1500 U, QD DROPS FOR 1 BOX
     Route: 048
  4. RIOCIGUAT (GUANYLATE CYCLASE STIMULATOR) [Suspect]
     Active Substance: RIOCIGUAT
     Indication: UNEVALUABLE EVENT
     Dosage: UNK
     Route: 064
     Dates: end: 20140601
  5. RIOCIGUAT (GUANYLATE CYCLASE STIMULATOR) [Suspect]
     Active Substance: RIOCIGUAT
     Indication: UNEVALUABLE EVENT
     Dosage: EXTENSION
     Dates: start: 20110728

REACTIONS (4)
  - Atrial septal defect [Not Recovered/Not Resolved]
  - Low birth weight baby [Recovered/Resolved]
  - Premature baby [Recovered/Resolved]
  - Foetal disorder [None]

NARRATIVE: CASE EVENT DATE: 20141108
